FAERS Safety Report 19118519 (Version 1)
Quarter: 2021Q2

REPORT INFORMATION
  Report Type: Spontaneous
  Country: RU (occurrence: RU)
  Receive Date: 20210410
  Receipt Date: 20210410
  Transmission Date: 20210717
  Serious: Yes (Hospitalization, Other)
  Sender: FDA-Public Use
  Company Number: RU-AMGEN-RUSSP2021018782

PATIENT
  Sex: Male

DRUGS (1)
  1. PROLIA [Suspect]
     Active Substance: DENOSUMAB
     Indication: HYPERCALCAEMIA
     Dosage: 60 MILLIGRAM
     Route: 058

REACTIONS (7)
  - Off label use [Unknown]
  - Bone pain [Recovered/Resolved]
  - Leukopenia [Unknown]
  - Blood phosphorus increased [Unknown]
  - Thrombocytopenia [Unknown]
  - Hypercalcaemia [Unknown]
  - C-telopeptide increased [Unknown]
